FAERS Safety Report 5139837-2 (Version None)
Quarter: 2006Q4

REPORT INFORMATION
  Report Type: 
  Country: None (occurrence: None)
  Receive Date: 20061025
  Receipt Date: 20061025
  Transmission Date: 20070319
  Serious: Yes (Other)
  Sender: FDA-Public Use
  Company Number: None

PATIENT
  Sex: Female
  Weight: 59.3 kg

DRUGS (11)
  1. INFLIXIMAB [Suspect]
     Indication: RHEUMATOID ARTHRITIS
     Dosage: 5 MG/KG IV Q 6 WK
     Dates: start: 20060113
  2. INFLIXIMAB [Suspect]
     Indication: RHEUMATOID ARTHRITIS
     Dosage: 5 MG/KG IV Q 6 WK
     Dates: start: 20060127
  3. INFLIXIMAB [Suspect]
     Indication: RHEUMATOID ARTHRITIS
     Dosage: 5 MG/KG IV Q 6 WK
     Dates: start: 20060224
  4. INFLIXIMAB [Suspect]
     Indication: RHEUMATOID ARTHRITIS
     Dosage: 5 MG/KG IV Q 6 WK
     Dates: start: 20060407
  5. INFLIXIMAB [Suspect]
     Indication: RHEUMATOID ARTHRITIS
     Dosage: 5 MG/KG IV Q 6 WK
     Dates: start: 20060519
  6. PREDNISONE TAB [Concomitant]
  7. IBUPROFEN [Concomitant]
  8. FOLIC ACID [Concomitant]
  9. METHOTREXATE [Concomitant]
  10. VIT D [Concomitant]
  11. CALCIUM CARBONATE [Concomitant]

REACTIONS (4)
  - ERYTHEMA [None]
  - INFUSION RELATED REACTION [None]
  - PRURITUS [None]
  - RASH [None]
